FAERS Safety Report 5822814-3 (Version None)
Quarter: 2008Q3

REPORT INFORMATION
  Report Type: 
  Country: None (occurrence: None)
  Receive Date: 20080722
  Receipt Date: 20080710
  Transmission Date: 20090109
  Serious: Yes (Death, Hospitalization, Other)
  Sender: FDA-Public Use
  Company Number: WAES 00115150

PATIENT
  Age: 65 Year
  Sex: Male

DRUGS (9)
  1. ZOCOR [Suspect]
     Indication: HYPERCHOLESTEROLAEMIA
     Dosage: 10 MG DAILY PO, 20 MG DAILY PO
     Route: 048
     Dates: start: 20000501, end: 20000929
  2. ZOCOR [Suspect]
     Indication: HYPERCHOLESTEROLAEMIA
     Dosage: 10 MG DAILY PO, 20 MG DAILY PO
     Route: 048
     Dates: start: 20000930, end: 20001030
  3. PRAVASTATIN SODIUM [Suspect]
     Indication: HYPERCHOLESTEROLAEMIA
     Dates: start: 19991201
  4. VASOTEC [Concomitant]
  5. ASPIRIN [Concomitant]
  6. ATENOLOL [Concomitant]
  7. CIMETIDINE [Concomitant]
  8. CIPROFLOXACIN [Concomitant]
  9. RAMIPRIL [Concomitant]

REACTIONS (14)
  - BLOOD ALBUMIN DECREASED [None]
  - BLOOD UREA INCREASED [None]
  - BODY TEMPERATURE INCREASED [None]
  - COLITIS ULCERATIVE [None]
  - DEHYDRATION [None]
  - DRUG INEFFECTIVE [None]
  - GASTROINTESTINAL STOMA COMPLICATION [None]
  - HAEMOGLOBIN DECREASED [None]
  - HYPOTENSION [None]
  - MEGACOLON [None]
  - MULTI-ORGAN FAILURE [None]
  - MYOCARDIAL INFARCTION [None]
  - PERITONITIS [None]
  - SEPTIC SHOCK [None]
